FAERS Safety Report 4305561-9 (Version None)
Quarter: 2004Q1

REPORT INFORMATION
  Report Type: 
  Country: None (occurrence: None)
  Receive Date: 20040226
  Receipt Date: 20031125
  Transmission Date: 20041129
  Serious: No
  Sender: FDA-Public Use
  Company Number: US-BRISTOL-MYERS SQUIBB COMPANY-12443768

PATIENT
  Age: 13 Year
  Sex: Male

DRUGS (1)
  1. ABILIFY [Suspect]
     Indication: TOURETTE'S DISORDER

REACTIONS (4)
  - ABDOMINAL DISCOMFORT [None]
  - ANTINEUTROPHIL CYTOPLASMIC ANTIBODY POSITIVE [None]
  - CROHN'S DISEASE [None]
  - RED BLOOD CELL SEDIMENTATION RATE INCREASED [None]
